FAERS Safety Report 10187425 (Version 1)
Quarter: 2014Q2

REPORT INFORMATION
  Report Type: Spontaneous
  Country: US (occurrence: US)
  Receive Date: 20140522
  Receipt Date: 20140522
  Transmission Date: 20141212
  Serious: Yes (Hospitalization)
  Sender: FDA-Public Use
  Company Number: US-SA-2014SA061314

PATIENT
  Sex: Female

DRUGS (1)
  1. APIDRA [Suspect]
     Indication: PRODUCT USED FOR UNKNOWN INDICATION
     Dosage: ROUTE: REPORTED USES APIDRA THROUGH A PUMP DOSE:80 UNIT(S)

REACTIONS (3)
  - Foot deformity [Unknown]
  - Foot deformity [Unknown]
  - Exostosis [Unknown]
